FAERS Safety Report 25260506 (Version 1)
Quarter: 2025Q2

REPORT INFORMATION
  Report Type: Spontaneous
  Country: US (occurrence: US)
  Receive Date: 20250501
  Receipt Date: 20250501
  Transmission Date: 20250716
  Serious: Yes (Life-Threatening, Hospitalization)
  Sender: MYLAN
  Company Number: US-MYLANLABS-2025M1036665

PATIENT
  Sex: Male

DRUGS (40)
  1. BUDESONIDE [Suspect]
     Active Substance: BUDESONIDE
     Indication: Crohn^s disease
  2. BUDESONIDE [Suspect]
     Active Substance: BUDESONIDE
  3. BUDESONIDE [Suspect]
     Active Substance: BUDESONIDE
     Route: 064
  4. BUDESONIDE [Suspect]
     Active Substance: BUDESONIDE
     Route: 064
  5. BUDESONIDE [Suspect]
     Active Substance: BUDESONIDE
  6. BUDESONIDE [Suspect]
     Active Substance: BUDESONIDE
  7. BUDESONIDE [Suspect]
     Active Substance: BUDESONIDE
     Route: 064
  8. BUDESONIDE [Suspect]
     Active Substance: BUDESONIDE
     Route: 064
  9. AMOXICILLIN [Suspect]
     Active Substance: AMOXICILLIN
     Indication: Beta haemolytic streptococcal infection
  10. AMOXICILLIN [Suspect]
     Active Substance: AMOXICILLIN
  11. AMOXICILLIN [Suspect]
     Active Substance: AMOXICILLIN
     Route: 064
  12. AMOXICILLIN [Suspect]
     Active Substance: AMOXICILLIN
     Route: 064
  13. AMOXICILLIN [Suspect]
     Active Substance: AMOXICILLIN
  14. AMOXICILLIN [Suspect]
     Active Substance: AMOXICILLIN
  15. AMOXICILLIN [Suspect]
     Active Substance: AMOXICILLIN
     Route: 064
  16. AMOXICILLIN [Suspect]
     Active Substance: AMOXICILLIN
     Route: 064
  17. HYDROCORTISONE [Suspect]
     Active Substance: HYDROCORTISONE
     Indication: Crohn^s disease
  18. HYDROCORTISONE [Suspect]
     Active Substance: HYDROCORTISONE
  19. HYDROCORTISONE [Suspect]
     Active Substance: HYDROCORTISONE
     Route: 064
  20. HYDROCORTISONE [Suspect]
     Active Substance: HYDROCORTISONE
     Route: 064
  21. HYDROCORTISONE [Suspect]
     Active Substance: HYDROCORTISONE
  22. HYDROCORTISONE [Suspect]
     Active Substance: HYDROCORTISONE
  23. HYDROCORTISONE [Suspect]
     Active Substance: HYDROCORTISONE
     Route: 064
  24. HYDROCORTISONE [Suspect]
     Active Substance: HYDROCORTISONE
     Route: 064
  25. AZATHIOPRINE [Suspect]
     Active Substance: AZATHIOPRINE
     Indication: Crohn^s disease
  26. AZATHIOPRINE [Suspect]
     Active Substance: AZATHIOPRINE
  27. AZATHIOPRINE [Suspect]
     Active Substance: AZATHIOPRINE
     Route: 064
  28. AZATHIOPRINE [Suspect]
     Active Substance: AZATHIOPRINE
     Route: 064
  29. AZATHIOPRINE [Suspect]
     Active Substance: AZATHIOPRINE
  30. AZATHIOPRINE [Suspect]
     Active Substance: AZATHIOPRINE
  31. AZATHIOPRINE [Suspect]
     Active Substance: AZATHIOPRINE
     Route: 064
  32. AZATHIOPRINE [Suspect]
     Active Substance: AZATHIOPRINE
     Route: 064
  33. ADALIMUMAB [Suspect]
     Active Substance: ADALIMUMAB
     Indication: Crohn^s disease
  34. ADALIMUMAB [Suspect]
     Active Substance: ADALIMUMAB
  35. ADALIMUMAB [Suspect]
     Active Substance: ADALIMUMAB
     Route: 064
  36. ADALIMUMAB [Suspect]
     Active Substance: ADALIMUMAB
     Route: 064
  37. ADALIMUMAB [Suspect]
     Active Substance: ADALIMUMAB
  38. ADALIMUMAB [Suspect]
     Active Substance: ADALIMUMAB
  39. ADALIMUMAB [Suspect]
     Active Substance: ADALIMUMAB
     Route: 064
  40. ADALIMUMAB [Suspect]
     Active Substance: ADALIMUMAB
     Route: 064

REACTIONS (6)
  - Vitamin K deficiency [Recovering/Resolving]
  - Coagulopathy [Recovering/Resolving]
  - Cerebral infarction [Recovering/Resolving]
  - Subdural haematoma [Recovering/Resolving]
  - Anaemia [Recovering/Resolving]
  - Foetal exposure during pregnancy [Recovered/Resolved]
